FAERS Safety Report 12914311 (Version 2)
Quarter: 2018Q4

REPORT INFORMATION
  Report Type: Spontaneous
  Country: US (occurrence: US)
  Receive Date: 20161106
  Receipt Date: 20181027
  Transmission Date: 20190204
  Serious: Yes (Other)
  Sender: FDA-Public Use
  Company Number: US-009507513-1610USA017127

PATIENT
  Sex: Female

DRUGS (2)
  1. IMPLANON [Suspect]
     Active Substance: ETONOGESTREL
     Indication: CONTRACEPTION
     Dosage: 1 DOSAGE FORM, LEFT ARM
     Route: 059
     Dates: start: 20100811, end: 20151009
  2. IMPLANON [Suspect]
     Active Substance: ETONOGESTREL
     Indication: CONTRACEPTION
     Dosage: 1 DOSAGE FORM, LEFT ARM
     Route: 059
     Dates: start: 200801, end: 20100811

REACTIONS (14)
  - Bacterial vaginosis [Unknown]
  - Trichomoniasis [Unknown]
  - Menstruation irregular [Unknown]
  - Complication associated with device [Recovered/Resolved]
  - General anaesthesia [Recovered/Resolved]
  - Incorrect product administration duration [Recovered/Resolved]
  - Complication of device removal [Recovered/Resolved]
  - Hypertension [Unknown]
  - Trichomoniasis [Unknown]
  - Chlamydia test positive [Unknown]
  - Device deployment issue [Recovered/Resolved]
  - Complication of device removal [Recovered/Resolved]
  - Discomfort [Unknown]
  - Nocturia [Unknown]

NARRATIVE: CASE EVENT DATE: 20080407
